FAERS Safety Report 5479318-X (Version None)
Quarter: 2007Q4

REPORT INFORMATION
  Report Type: 
  Country: None (occurrence: None)
  Receive Date: 20071008
  Receipt Date: 20070928
  Transmission Date: 20080405
  Serious: Yes (Hospitalization, Other)
  Sender: FDA-Public Use
  Company Number: PHBS2007JP09882

PATIENT
  Age: 73 Year
  Sex: Female
  Weight: 57 kg

DRUGS (12)
  1. DIOVAN [Suspect]
     Indication: HYPERTENSION
     Dosage: 80 MG, BID
     Route: 048
     Dates: start: 20070215, end: 20070525
  2. DIOVAN [Suspect]
     Dosage: 40 MG
     Route: 048
     Dates: start: 20040611, end: 20040805
  3. DIOVAN [Suspect]
     Dosage: 80 MG/DAY
     Route: 048
     Dates: start: 20040806
  4. THYRADIN [Concomitant]
     Indication: HYPOTHYROIDISM
     Dosage: 150 UG, UNK
     Route: 048
     Dates: start: 20050615
  5. THYRADIN [Concomitant]
     Dosage: 25 UG, UNK
     Route: 048
  6. NEUROVITAN [Concomitant]
     Dosage: 3 DF, UNK
     Route: 048
     Dates: start: 20040806, end: 20070525
  7. FRANDOL [Concomitant]
     Indication: ANGINA PECTORIS
     Dosage: 40 MG, UNK
     Dates: start: 20040611
  8. LIPIDIL [Concomitant]
     Indication: HYPERLIPIDAEMIA
     Dosage: 67 MG, UNK
     Route: 048
     Dates: start: 20051201, end: 20070525
  9. NOVORAPID [Concomitant]
     Route: 058
  10. ATELEC [Concomitant]
     Indication: HYPERTENSION
     Dosage: 20 MG, UNK
     Route: 048
     Dates: start: 20060911, end: 20070525
  11. PURSENNID [Concomitant]
     Dosage: 12 MG, BID
  12. CONIEL [Concomitant]
     Dosage: 2 MG/DAY

REACTIONS (19)
  - ASCITES [None]
  - ASPARTATE AMINOTRANSFERASE INCREASED [None]
  - BLOOD GLUCOSE INCREASED [None]
  - BLOOD LACTATE DEHYDROGENASE INCREASED [None]
  - BLOOD PRESSURE INCREASED [None]
  - BLOOD URIC ACID INCREASED [None]
  - C-REACTIVE PROTEIN INCREASED [None]
  - COUGH [None]
  - FALL [None]
  - GAMMA-GLUTAMYLTRANSFERASE INCREASED [None]
  - HAEMOGLOBIN DECREASED [None]
  - HEPATIC ATROPHY [None]
  - HEPATIC CIRRHOSIS [None]
  - OEDEMA [None]
  - RED BLOOD CELL COUNT DECREASED [None]
  - RENAL DISORDER [None]
  - RIB FRACTURE [None]
  - UPPER RESPIRATORY TRACT INFLAMMATION [None]
  - WEIGHT INCREASED [None]
